FAERS Safety Report 7285098-8 (Version None)
Quarter: 2011Q1

REPORT INFORMATION
  Report Type: 
  Country: None (occurrence: None)
  Receive Date: 20110210
  Receipt Date: 20110128
  Transmission Date: 20110831
  Serious: Yes (Other)
  Sender: FDA-Public Use
  Company Number: PHHY2011JP04569

PATIENT
  Age: 65 Year
  Sex: Male

DRUGS (2)
  1. LOPRESSOR [Suspect]
     Indication: HYPERTENSION
     Dosage: 120 MG, UNK
     Route: 048
  2. PRAZOSIN HYDROCHLORIDE [Concomitant]
     Indication: HYPERTENSION
     Dosage: 9 MG, UNK
     Route: 048

REACTIONS (1)
  - ILEUS PARALYTIC [None]
